FAERS Safety Report 7338225-8 (Version None)
Quarter: 2011Q1

REPORT INFORMATION
  Report Type: 
  Country: None (occurrence: None)
  Receive Date: 20110308
  Receipt Date: 20110223
  Transmission Date: 20110831
  Serious: Yes (Other)
  Sender: FDA-Public Use
  Company Number: GXKR2011DK01032

PATIENT
  Sex: Female
  Weight: 75 kg

DRUGS (14)
  1. RIFAMPICIN SANDOZ [Interacting]
     Dosage: 300 MG, TID
     Route: 048
     Dates: end: 20100715
  2. GENTAMICIN [Suspect]
     Dosage: UNK
     Dates: end: 20100715
  3. LAMICTAL [Interacting]
     Dosage: 350 MG, QD
     Route: 048
  4. FUCIDINE CAP [Interacting]
     Indication: POST PROCEDURAL INFECTION
     Route: 048
     Dates: end: 20100715
  5. LAMICTAL [Interacting]
     Indication: EPILEPSY
     Dosage: 350 MG, QD
     Route: 048
     Dates: start: 19800101
  6. AMLODIPINE [Concomitant]
     Indication: HYPERTENSION
     Dosage: 10 MG
     Route: 048
  7. OXYNORM [Concomitant]
     Indication: PROCEDURAL PAIN
  8. LAMICTAL [Interacting]
     Dosage: 500-600 MG, DAILY
     Route: 048
     Dates: start: 20100712
  9. LAMICTAL [Interacting]
     Dosage: 700 MG, QD
     Dates: start: 20100723
  10. CORODIL [Concomitant]
     Indication: HYPERTENSION
     Dosage: 10 MG,
     Route: 048
  11. PERILAX [Interacting]
     Dosage: 5 MILLIGRAM(S)
     Route: 048
     Dates: end: 20100715
  12. ZINACEF [Interacting]
     Indication: POST PROCEDURAL INFECTION
     Route: 030
     Dates: end: 20100425
  13. LAMICTAL [Interacting]
     Dosage: 550 MG, QD
     Route: 048
     Dates: start: 20100910
  14. DICLOXACILLIN [Concomitant]
     Dates: end: 20100425

REACTIONS (3)
  - ABDOMINAL DISCOMFORT [None]
  - DRUG INTERACTION [None]
  - GRAND MAL CONVULSION [None]
